FAERS Safety Report 10570359 (Version 1)
Quarter: 2014Q4

REPORT INFORMATION
  Report Type: Spontaneous
  Country: IE (occurrence: IE)
  Receive Date: 20141107
  Receipt Date: 20141107
  Transmission Date: 20150529
  Serious: Yes (Other)
  Sender: FDA-Public Use
  Company Number: PHFR2014IE007582

PATIENT
  Sex: Male

DRUGS (2)
  1. DEPIXOL [Concomitant]
     Active Substance: FLUPENTIXOL DECANOATE
     Indication: SCHIZOPHRENIA
     Dosage: 2.142 MG (30 MG, 1 IN 2 WEEKS)
     Route: 065
  2. EXFORGE [Suspect]
     Active Substance: AMLODIPINE BESYLATE\VALSARTAN
     Indication: HYPERTENSION
     Dosage: 1 DF, QD (80 MG VALS/ 5 MG AMLO)
     Route: 048
     Dates: start: 201304

REACTIONS (1)
  - Paraesthesia [Not Recovered/Not Resolved]
